FAERS Safety Report 9011890 (Version 5)
Quarter: 2013Q2

REPORT INFORMATION
  Report Type: Spontaneous
  Country: US (occurrence: US)
  Receive Date: 20130114
  Receipt Date: 20130603
  Transmission Date: 20140414
  Serious: Yes (Hospitalization)
  Sender: FDA-Public Use
  Company Number: US-BIOGENIDEC-2013BI001277

PATIENT
  Age: 37 Year
  Sex: Male
  Weight: 112 kg

DRUGS (4)
  1. TYSABRI [Suspect]
     Indication: MULTIPLE SCLEROSIS
     Route: 042
     Dates: start: 20080322, end: 20120521
  2. TYSABRI [Suspect]
     Indication: MULTIPLE SCLEROSIS
     Route: 042
     Dates: start: 20121019, end: 20121217
  3. ROPINIROLE [Concomitant]
     Indication: RESTLESS LEGS SYNDROME
  4. CLONAZEPAM [Concomitant]
     Indication: RESTLESS LEGS SYNDROME

REACTIONS (4)
  - Multiple sclerosis relapse [Not Recovered/Not Resolved]
  - Staphylococcal infection [Unknown]
  - Urinary tract infection [Recovered/Resolved]
  - Nasopharyngitis [Unknown]
